FAERS Safety Report 23201485 (Version 3)
Quarter: 2023Q4

REPORT INFORMATION
  Report Type: Report from Study
  Country: ES (occurrence: ES)
  Receive Date: 20231118
  Receipt Date: 20231222
  Transmission Date: 20240110
  Serious: Yes (Hospitalization, Other)
  Sender: FDA-Public Use
  Company Number: ES-TAKEDA-2023TUS052071

PATIENT
  Age: 3 Year
  Sex: Female
  Weight: 16 kg

DRUGS (7)
  1. ADAMTS13, RECOMBINANT-KRHN [Suspect]
     Active Substance: ADAMTS13, RECOMBINANT-KRHN
     Indication: Thrombotic thrombocytopenic purpura
     Dosage: 40 INTERNATIONAL UNIT/KILOGRAM, Q2WEEKS
     Route: 065
     Dates: start: 202208
  2. ADAMTS13, RECOMBINANT-KRHN [Suspect]
     Active Substance: ADAMTS13, RECOMBINANT-KRHN
     Indication: Prophylaxis
     Dosage: UNK
     Route: 065
     Dates: start: 20230522
  3. ADAMTS13, RECOMBINANT-KRHN [Suspect]
     Active Substance: ADAMTS13, RECOMBINANT-KRHN
     Dosage: UNK
     Route: 065
     Dates: start: 20230604
  4. ADAMTS13, RECOMBINANT-KRHN [Suspect]
     Active Substance: ADAMTS13, RECOMBINANT-KRHN
     Dosage: 40 INTERNATIONAL UNIT/KILOGRAM, 1/WEEK
     Route: 065
  5. ADAMTS13, RECOMBINANT-KRHN [Suspect]
     Active Substance: ADAMTS13, RECOMBINANT-KRHN
     Dosage: UNK UNK, Q2WEEKS
     Route: 065
  6. ADAMTS13, RECOMBINANT-KRHN [Suspect]
     Active Substance: ADAMTS13, RECOMBINANT-KRHN
     Dosage: UNK UNK, 1/WEEK
     Route: 065
  7. ADAMTS13, RECOMBINANT-KRHN [Suspect]
     Active Substance: ADAMTS13, RECOMBINANT-KRHN
     Dosage: UNK
     Route: 065

REACTIONS (13)
  - Thrombocytopenia [Recovered/Resolved]
  - Platelet count decreased [Recovered/Resolved]
  - Pyrexia [Recovered/Resolved]
  - Anaemia [Unknown]
  - Upper respiratory tract infection [Recovered/Resolved]
  - Haemolysis [Recovered/Resolved]
  - Respiratory syncytial virus infection [Recovered/Resolved]
  - Conjunctivitis [Recovered/Resolved]
  - ADAMTS13 activity decreased [Recovered/Resolved]
  - Drug ineffective [Unknown]
  - Petechiae [Unknown]
  - Skin lesion [Recovered/Resolved]
  - Platelet count increased [Unknown]

NARRATIVE: CASE EVENT DATE: 20221201
